FAERS Safety Report 12566857 (Version 1)
Quarter: 2016Q3

REPORT INFORMATION
  Report Type: Spontaneous
  Country: US (occurrence: US)
  Receive Date: 20160718
  Receipt Date: 20160718
  Transmission Date: 20161109
  Serious: Yes (Other)
  Sender: FDA-Public Use
  Company Number: US-TEVA-678003USA

PATIENT
  Sex: Female

DRUGS (7)
  1. ATENOLOL AND CHLORTALIDONE [Suspect]
     Active Substance: ATENOLOL\CHLORTHALIDONE
     Indication: HYPERTENSION
     Route: 065
     Dates: start: 2012, end: 201306
  2. METFORMIN [Concomitant]
     Active Substance: METFORMIN HYDROCHLORIDE
     Indication: GLUCOSE TOLERANCE IMPAIRED
     Dosage: 1 1/2 PER DAY
     Dates: start: 20120418
  3. ATENOLOL. [Concomitant]
     Active Substance: ATENOLOL
     Dates: start: 2012, end: 2013
  4. CALTRATE D1 [Concomitant]
     Indication: BLOOD CALCIUM
  5. MULTIVITAMIN CENTRUM SILVER [Concomitant]
  6. MULTI VITAMIN NATURE MADE [Concomitant]
  7. PRAZOSIN [Concomitant]
     Active Substance: PRAZOSIN
     Dosage: 4 MILLIGRAM DAILY;
     Dates: start: 2011, end: 201306

REACTIONS (4)
  - Lip swelling [Recovered/Resolved]
  - Swollen tongue [Recovered/Resolved]
  - Urticaria [Recovered/Resolved]
  - Swelling [Recovered/Resolved]
